FAERS Safety Report 6893984-3 (Version None)
Quarter: 2010Q3

REPORT INFORMATION
  Report Type: 
  Country: None (occurrence: None)
  Receive Date: 20100802
  Receipt Date: 20100722
  Transmission Date: 20110219
  Serious: Yes (Other)
  Sender: FDA-Public Use
  Company Number: US-RB-013103-10

PATIENT
  Age: 3 Year
  Sex: Female

DRUGS (1)
  1. MUCINEX CHILDREN'S EXPECTORANT 4OZ GRAPE [Suspect]
     Route: 048
     Dates: start: 20100721

REACTIONS (3)
  - DRUG ADMINISTRATION ERROR [None]
  - EXPIRED DRUG ADMINISTERED [None]
  - PSYCHOMOTOR HYPERACTIVITY [None]
